FAERS Safety Report 20813071 (Version 1)
Quarter: 2022Q2

REPORT INFORMATION
  Report Type: Report from Study
  Country: CA (occurrence: CA)
  Receive Date: 20220511
  Receipt Date: 20220511
  Transmission Date: 20220721
  Serious: Yes (Other)
  Sender: FDA-Public Use
  Company Number: CA-JNJFOC-20220507084

PATIENT
  Age: 14 Year
  Sex: Female

DRUGS (1)
  1. REMICADE [Suspect]
     Active Substance: INFLIXIMAB
     Indication: Colitis ulcerative
     Dosage: ON 03-MAY-2022, THE PATIENT RECEIVED 07TH INFLIXIMAB, RECOMBINANT INFUSION FOR DOSE 400 MILLIGRAM
     Route: 042
     Dates: start: 20211214

REACTIONS (9)
  - Haematochezia [Recovered/Resolved]
  - Chest discomfort [Unknown]
  - Headache [Unknown]
  - Arthralgia [Unknown]
  - Fatigue [Unknown]
  - Defaecation urgency [Unknown]
  - Diarrhoea [Unknown]
  - Abdominal pain [Unknown]
  - General physical health deterioration [Unknown]
